FAERS Safety Report 10401430 (Version 2)
Quarter: 2014Q3

REPORT INFORMATION
  Report Type: Report from Study
  Country: US (occurrence: US)
  Receive Date: 20140822
  Receipt Date: 20140822
  Transmission Date: 20150326
  Serious: Yes (Life-Threatening, Hospitalization)
  Sender: FDA-Public Use
  Company Number: US-009507513-1302USA010752

PATIENT
  Age: 15 Month
  Sex: Male
  Weight: 9.76 kg

DRUGS (8)
  1. VORINOSTAT [Suspect]
     Active Substance: VORINOSTAT
     Indication: PRIMITIVE NEUROECTODERMAL TUMOUR
     Dosage: 230 MG/M2/DOSE, ON DAYS 1-4, CYCLE 1
     Route: 048
     Dates: start: 20130206, end: 20130209
  2. ISOTRETINOIN [Suspect]
     Active Substance: ISOTRETINOIN
     Indication: PRIMITIVE NEUROECTODERMAL TUMOUR
     Dosage: 80 MG/M2/DOSE, BID, ON DAYS 1-4, CYCLE 1
     Route: 048
     Dates: start: 20130206, end: 20130209
  3. ETOPOSIDE. [Suspect]
     Active Substance: ETOPOSIDE
     Indication: PRIMITIVE NEUROECTODERMAL TUMOUR
     Dosage: 2.5 MG/KG/DAY, OVER 1 HR ON DAYS 4, 5 AND 6, CYCLE 1
     Route: 042
     Dates: start: 20130209, end: 20130211
  4. FILGRASTIM [Concomitant]
     Active Substance: FILGRASTIM
     Indication: PRIMITIVE NEUROECTODERMAL TUMOUR
     Dosage: UNK
     Dates: end: 20130219
  5. MESNA. [Concomitant]
     Active Substance: MESNA
     Indication: PRIMITIVE NEUROECTODERMAL TUMOUR
     Dosage: UNK
     Dates: end: 20130211
  6. VINCRISTINE SULFATE. [Suspect]
     Active Substance: VINCRISTINE SULFATE
     Indication: PRIMITIVE NEUROECTODERMAL TUMOUR
     Dosage: 0.05 MG/KG/DAY, ON DAYS 4, 11 AND 18, CYCLE 1
     Route: 042
     Dates: start: 20130209, end: 20130215
  7. CISPLATIN. [Suspect]
     Active Substance: CISPLATIN
     Indication: PRIMITIVE NEUROECTODERMAL TUMOUR
     Dosage: 3.5 MG/KG/DAY, OVER 6 HRS ON DAY 4, CYCLE 1
     Route: 042
     Dates: start: 20130209, end: 20130209
  8. CYCLOPHOSPHAMIDE. [Suspect]
     Active Substance: CYCLOPHOSPHAMIDE
     Indication: PRIMITIVE NEUROECTODERMAL TUMOUR
     Dosage: 60 MG/KG/DAY, OVER 1 HR ON DAYS 5 AND 6, CYCLE 1
     Route: 042
     Dates: start: 20130210, end: 20130211

REACTIONS (2)
  - Hypokalaemia [Recovered/Resolved]
  - Staphylococcal infection [Recovered/Resolved]

NARRATIVE: CASE EVENT DATE: 20130220
